FAERS Safety Report 10573726 (Version 1)
Quarter: 2014Q4

REPORT INFORMATION
  Report Type: Spontaneous
  Country: JP (occurrence: JP)
  Receive Date: 20141110
  Receipt Date: 20141110
  Transmission Date: 20150529
  Serious: Yes (Death, Hospitalization)
  Sender: FDA-Public Use
  Company Number: JP-ROXANE LABORATORIES, INC.-2014-RO-01690RO

PATIENT
  Age: 57 Year
  Sex: Female

DRUGS (6)
  1. CYCLOPHOSPHAMIDE. [Suspect]
     Active Substance: CYCLOPHOSPHAMIDE
     Indication: ORGANISING PNEUMONIA
     Route: 065
  2. AZATHIOPRINE. [Suspect]
     Active Substance: AZATHIOPRINE
     Indication: ORGANISING PNEUMONIA
     Route: 065
     Dates: start: 201011
  3. TACROLIMUS. [Suspect]
     Active Substance: TACROLIMUS
     Indication: ORGANISING PNEUMONIA
     Route: 065
     Dates: start: 201107
  4. MEFLOQUINE [Suspect]
     Active Substance: MEFLOQUINE
     Route: 051
  5. MEFLOQUINE [Suspect]
     Active Substance: MEFLOQUINE
     Indication: PROGRESSIVE MULTIFOCAL LEUKOENCEPHALOPATHY
     Route: 051
  6. MEFLOQUINE [Suspect]
     Active Substance: MEFLOQUINE
     Route: 051

REACTIONS (3)
  - Progressive multifocal leukoencephalopathy [Unknown]
  - Lymphoma [Fatal]
  - JC virus infection [Unknown]
